FAERS Safety Report 21613983 (Version 2)
Quarter: 2023Q1

REPORT INFORMATION
  Report Type: Spontaneous
  Country: US (occurrence: US)
  Receive Date: 20221118
  Receipt Date: 20230104
  Transmission Date: 20230418
  Serious: No
  Sender: FDA-Public Use
  Company Number: US-GSK-US2022AMR166116

PATIENT
  Sex: Male

DRUGS (5)
  1. ALBUTEROL SULFATE [Suspect]
     Active Substance: ALBUTEROL SULFATE
     Indication: Asthma
     Dosage: UNK,18G/200 METERED
  2. XOPENEX HFA [Concomitant]
     Active Substance: LEVALBUTEROL TARTRATE
     Indication: Product used for unknown indication
     Dosage: 2 PUFF(S), QD
     Route: 048
  3. IBUPROFEN [Concomitant]
     Active Substance: IBUPROFEN
     Indication: Product used for unknown indication
     Dosage: 400 MG
  4. SELENIUM SHAMPOO [Concomitant]
     Indication: Product used for unknown indication
     Dosage: UNK
  5. APAP [Concomitant]
     Active Substance: ACETAMINOPHEN
     Indication: Product used for unknown indication
     Dosage: 500 MG
     Route: 048

REACTIONS (5)
  - Secretion discharge [Unknown]
  - Fall [Unknown]
  - Mobility decreased [Unknown]
  - Asthma [Unknown]
  - Prescription drug used without a prescription [Unknown]
